FAERS Safety Report 13484056 (Version 1)
Quarter: 2017Q2

REPORT INFORMATION
  Report Type: Spontaneous
  Country: US (occurrence: US)
  Receive Date: 20170425
  Receipt Date: 20170425
  Transmission Date: 20170830
  Serious: No
  Sender: FDA-Public Use
  Company Number: US-SENTYNL THERAPEUTICS, INC.  -1065830

PATIENT
  Age: 67 Year
  Sex: Female

DRUGS (3)
  1. PERCOCET [Interacting]
     Active Substance: ACETAMINOPHEN\OXYCODONE HYDROCHLORIDE
  2. HYDROCODONE BITARTRATE AND ACETAMINOPHEN [Interacting]
     Active Substance: ACETAMINOPHEN\HYDROCODONE BITARTRATE
  3. LEVORPHANOL TARTRATE. [Suspect]
     Active Substance: LEVORPHANOL TARTRATE
     Indication: PAIN
     Route: 048
     Dates: start: 20160928, end: 20161019

REACTIONS (3)
  - Drug interaction [Unknown]
  - Therapy cessation [Unknown]
  - Dizziness [Not Recovered/Not Resolved]
